FAERS Safety Report 10692092 (Version 1)
Quarter: 2015Q1

REPORT INFORMATION
  Report Type: Other
  Country: DE (occurrence: DE)
  Receive Date: 20150106
  Receipt Date: 20150106
  Transmission Date: 20150720
  Serious: Yes (Hospitalization)
  Sender: FDA-Public Use
  Company Number: DE-LUPIN PHARMACEUTICALS INC.-E2B_00002838

PATIENT
  Age: 27 Year
  Sex: Male

DRUGS (18)
  1. SERTRALINE [Suspect]
     Active Substance: SERTRALINE HYDROCHLORIDE
     Indication: PRODUCT USED FOR UNKNOWN INDICATION
     Route: 048
     Dates: start: 20140722, end: 20140723
  2. SERTRALINE [Suspect]
     Active Substance: SERTRALINE HYDROCHLORIDE
     Route: 048
     Dates: start: 20140724, end: 20140727
  3. MEDIKINET [Suspect]
     Active Substance: METHYLPHENIDATE
     Route: 048
     Dates: start: 20140717, end: 20140720
  4. MEDIKINET [Suspect]
     Active Substance: METHYLPHENIDATE
     Route: 048
     Dates: start: 20140828
  5. SERTRALINE [Suspect]
     Active Substance: SERTRALINE HYDROCHLORIDE
     Route: 048
     Dates: start: 20140916, end: 20140917
  6. MEDIKINET [Suspect]
     Active Substance: METHYLPHENIDATE
     Route: 048
     Dates: start: 20140724, end: 20140811
  7. MEDIKINET [Suspect]
     Active Substance: METHYLPHENIDATE
     Route: 048
     Dates: start: 20140812, end: 20140813
  8. MEDIKINET [Suspect]
     Active Substance: METHYLPHENIDATE
     Route: 048
     Dates: start: 20140814, end: 20140827
  9. SERTRALINE [Suspect]
     Active Substance: SERTRALINE HYDROCHLORIDE
     Route: 048
     Dates: start: 20140731, end: 20140811
  10. SERTRALINE [Suspect]
     Active Substance: SERTRALINE HYDROCHLORIDE
     Route: 048
     Dates: start: 20140922
  11. MEDIKINET [Suspect]
     Active Substance: METHYLPHENIDATE
     Route: 048
     Dates: start: 20140715, end: 20140716
  12. MEDIKINET [Suspect]
     Active Substance: METHYLPHENIDATE
     Route: 048
     Dates: start: 20140721, end: 20140723
  13. SERTRALINE [Suspect]
     Active Substance: SERTRALINE HYDROCHLORIDE
     Route: 048
     Dates: start: 20140909, end: 20140912
  14. SERTRALINE [Suspect]
     Active Substance: SERTRALINE HYDROCHLORIDE
     Route: 048
     Dates: start: 20140728, end: 20140730
  15. SERTRALINE [Suspect]
     Active Substance: SERTRALINE HYDROCHLORIDE
     Route: 048
     Dates: start: 20140812, end: 20140908
  16. SERTRALINE [Suspect]
     Active Substance: SERTRALINE HYDROCHLORIDE
     Route: 048
     Dates: start: 20140918, end: 20140921
  17. MEDIKINET [Suspect]
     Active Substance: METHYLPHENIDATE
     Indication: PRODUCT USED FOR UNKNOWN INDICATION
     Route: 048
     Dates: start: 20140601, end: 20140714
  18. SERTRALINE [Suspect]
     Active Substance: SERTRALINE HYDROCHLORIDE
     Route: 048
     Dates: start: 20140913, end: 20140915

REACTIONS (1)
  - Suicide attempt [Recovered/Resolved]

NARRATIVE: CASE EVENT DATE: 20140902
